FAERS Safety Report 10920846 (Version 1)
Quarter: 2015Q1

REPORT INFORMATION
  Report Type: Spontaneous
  Country: US (occurrence: US)
  Receive Date: 20150317
  Receipt Date: 20150317
  Transmission Date: 20150721
  Serious: No
  Sender: FDA-Public Use
  Company Number: US-PFIZER INC-2015087753

PATIENT
  Sex: Female

DRUGS (1)
  1. ADVIL [Suspect]
     Active Substance: IBUPROFEN
     Indication: TENDONITIS
     Dosage: UNK

REACTIONS (3)
  - Erythema [Unknown]
  - Paraesthesia [Unknown]
  - Intentional product misuse [Unknown]
